FAERS Safety Report 5519692-9 (Version None)
Quarter: 2007Q4

REPORT INFORMATION
  Report Type: 
  Country: None (occurrence: None)
  Receive Date: 20071116
  Receipt Date: 20071109
  Transmission Date: 20080405
  Serious: Yes (Other)
  Sender: FDA-Public Use
  Company Number: US-JNJFOC-20071103801

PATIENT
  Age: 58 Year
  Sex: Female

DRUGS (5)
  1. TRINESSA [Suspect]
     Indication: MENSTRUATION IRREGULAR
     Route: 048
  2. CRANBERRY CONTENTRATE [Concomitant]
  3. PRENATAL VITAMINS [Concomitant]
     Indication: ANAEMIA
  4. VITAMIN E [Concomitant]
  5. PRIMROSE [Concomitant]

REACTIONS (5)
  - HUNGER [None]
  - HYPERSENSITIVITY [None]
  - MOOD SWINGS [None]
  - WEIGHT INCREASED [None]
  - WITHDRAWAL BLEED [None]
